FAERS Safety Report 13012723 (Version 1)
Quarter: 2016Q4

REPORT INFORMATION
  Report Type: Spontaneous
  Country: US (occurrence: US)
  Receive Date: 20161209
  Receipt Date: 20161209
  Transmission Date: 20170207
  Serious: No
  Sender: FDA-Public Use
  Company Number: US-TEVA-709146USA

PATIENT
  Age: 13 Year
  Sex: Male

DRUGS (1)
  1. GUAIFENESIN EXTENDED RELEASE [Suspect]
     Active Substance: GUAIFENESIN
     Indication: PRODUCTIVE COUGH
     Dosage: 1200 MILLIGRAM DAILY;
     Route: 048
     Dates: start: 20160927, end: 20160927

REACTIONS (3)
  - Hyperhidrosis [Recovered/Resolved]
  - Chills [Recovered/Resolved]
  - Wrong technique in product usage process [Unknown]

NARRATIVE: CASE EVENT DATE: 20160927
